FAERS Safety Report 10338268 (Version 1)
Quarter: 2014Q3

REPORT INFORMATION
  Report Type: Spontaneous
  Country: US (occurrence: None)
  Receive Date: 20140723
  Receipt Date: 20140723
  Transmission Date: 20150326
  Serious: Yes (Other)
  Sender: FDA-Public Use
  Company Number: None

PATIENT
  Age: 41 Year
  Sex: Male

DRUGS (2)
  1. HUMIRA [Suspect]
     Active Substance: ADALIMUMAB
     Indication: PSORIASIS
     Dosage: 10MG, EVERY OTHER WEEK, SUB-Q
     Route: 058
     Dates: start: 200809
  2. NASACORT AIR SPRAY [Concomitant]

REACTIONS (3)
  - Depression [None]
  - Apathy [None]
  - Paraesthesia [None]
